FAERS Safety Report 12095652 (Version 1)
Quarter: 2016Q1

REPORT INFORMATION
  Report Type: Spontaneous
  Country: US (occurrence: US)
  Receive Date: 20160219
  Receipt Date: 20160219
  Transmission Date: 20160526
  Serious: No
  Sender: FDA-Public Use
  Company Number: US-AUROBINDO-AUR-APU-2014-12503

PATIENT
  Sex: Female
  Weight: 44 kg

DRUGS (1)
  1. AMOXICILLIN CAPSULES USP 500 MG [Suspect]
     Active Substance: AMOXICILLIN
     Indication: TOOTH INFECTION
     Dosage: 500 MG, 3 TIMES A DAY
     Route: 048
     Dates: start: 20141111, end: 20141120

REACTIONS (5)
  - Rash [Recovered/Resolved]
  - Skin reaction [Recovered/Resolved]
  - Rash pruritic [Recovered/Resolved]
  - Toothache [Recovered/Resolved]
  - Infection [Recovered/Resolved]
